FAERS Safety Report 14631220 (Version 1)
Quarter: 2018Q1

REPORT INFORMATION
  Report Type: Spontaneous
  Country: CA (occurrence: CA)
  Receive Date: 20180313
  Receipt Date: 20180313
  Transmission Date: 20180509
  Serious: Yes (Life-Threatening)
  Sender: FDA-Public Use
  Company Number: CA-JNJFOC-20180312565

PATIENT
  Age: 10 Year
  Sex: Male
  Weight: 35.38 kg

DRUGS (1)
  1. CONCERTA [Suspect]
     Active Substance: METHYLPHENIDATE HYDROCHLORIDE
     Indication: ATTENTION DEFICIT/HYPERACTIVITY DISORDER
     Route: 048

REACTIONS (6)
  - Precocious puberty [Unknown]
  - Suicidal ideation [Unknown]
  - Anxiety [Unknown]
  - Speech disorder [Unknown]
  - Weight decreased [Unknown]
  - Insomnia [Unknown]
